FAERS Safety Report 5078629-X (Version None)
Quarter: 2006Q3

REPORT INFORMATION
  Report Type: 
  Country: None (occurrence: None)
  Receive Date: 20060809
  Receipt Date: 20060809
  Transmission Date: 20061208
  Serious: Yes (Other)
  Sender: FDA-Public Use
  Company Number: None

PATIENT
  Sex: Male
  Weight: 42 kg

DRUGS (8)
  1. EXJADE [Suspect]
     Indication: BLOOD IRON INCREASED
     Dosage: 1500 MG   DAILY   ENTERAL
     Route: 048
     Dates: start: 20060201, end: 20060401
  2. EXJADE [Suspect]
     Indication: TRANSFUSION
     Dosage: 1500 MG   DAILY   ENTERAL
     Route: 048
     Dates: start: 20060201, end: 20060401
  3. EXJADE [Suspect]
     Indication: BLOOD IRON INCREASED
     Dosage: 1500 MG   DAILY   ENTERAL
     Route: 048
     Dates: start: 20060501, end: 20060701
  4. EXJADE [Suspect]
     Indication: TRANSFUSION
     Dosage: 1500 MG   DAILY   ENTERAL
     Route: 048
     Dates: start: 20060501, end: 20060701
  5. METOCLOPRAMIDE [Concomitant]
  6. GLYCOLAX [Concomitant]
  7. POTASSIUM CHLORIDE [Concomitant]
  8. BACLOFEN [Concomitant]

REACTIONS (5)
  - ALANINE AMINOTRANSFERASE INCREASED [None]
  - ASPARTATE AMINOTRANSFERASE INCREASED [None]
  - HEPATOTOXICITY [None]
  - RESPIRATORY DISORDER [None]
  - WEIGHT DECREASED [None]
